FAERS Safety Report 13377605 (Version 1)
Quarter: 2017Q1

REPORT INFORMATION
  Report Type: Spontaneous
  Country: CA (occurrence: CA)
  Receive Date: 20170328
  Receipt Date: 20170328
  Transmission Date: 20170429
  Serious: Yes (Other)
  Sender: FDA-Public Use
  Company Number: CA-PFIZER INC-2017127634

PATIENT
  Age: 70 Year
  Sex: Female
  Weight: 96.5 kg

DRUGS (2)
  1. TYLENOL [Concomitant]
     Active Substance: ACETAMINOPHEN
     Dosage: 325 MG, AS NEEDED
  2. ADVIL [Suspect]
     Active Substance: IBUPROFEN
     Dosage: 200 MG, AS NEEDED

REACTIONS (1)
  - Diverticulitis [Unknown]
